FAERS Safety Report 14425110 (Version 1)
Quarter: 2018Q1

REPORT INFORMATION
  Report Type: Spontaneous
  Country: US (occurrence: US)
  Receive Date: 20180123
  Receipt Date: 20180123
  Transmission Date: 20180509
  Serious: Yes (Other)
  Sender: FDA-Public Use
  Company Number: US-BAYER-2018-013597

PATIENT
  Age: 62 Year
  Sex: Female
  Weight: 127 kg

DRUGS (1)
  1. AFRIN ORIGINAL [Suspect]
     Active Substance: OXYMETAZOLINE HYDROCHLORIDE
     Dosage: UNK
     Route: 055

REACTIONS (2)
  - Drug abuse [Recovered/Resolved]
  - Drug dependence [Recovered/Resolved]
